FAERS Safety Report 7801050-5 (Version None)
Quarter: 2011Q4

REPORT INFORMATION
  Report Type: 
  Country: None (occurrence: None)
  Receive Date: 20111007
  Receipt Date: 20110929
  Transmission Date: 20120403
  Serious: No
  Sender: FDA-Public Use
  Company Number: US-BIOGENIDEC-2011BI028979

PATIENT
  Sex: Female

DRUGS (1)
  1. TYSABRI [Suspect]
     Indication: MULTIPLE SCLEROSIS
     Route: 042
     Dates: start: 20110525

REACTIONS (11)
  - TREMOR [None]
  - MUSCULOSKELETAL DISORDER [None]
  - MEMORY IMPAIRMENT [None]
  - ABASIA [None]
  - BLINDNESS UNILATERAL [None]
  - STRESS [None]
  - MUSCLE SPASTICITY [None]
  - MUSCULAR WEAKNESS [None]
  - COGNITIVE DISORDER [None]
  - AGRAPHIA [None]
  - MENTAL IMPAIRMENT [None]
